FAERS Safety Report 7784641-X (Version None)
Quarter: 2011Q3

REPORT INFORMATION
  Report Type: 
  Country: None (occurrence: None)
  Receive Date: 20110928
  Receipt Date: 20110915
  Transmission Date: 20111222
  Serious: Yes (Death)
  Sender: FDA-Public Use
  Company Number: IT-MYLANLABS-2011S1019780

PATIENT
  Age: 58 Year
  Sex: Male

DRUGS (3)
  1. BACLOFEN [Suspect]
     Route: 048
  2. DIAZEPAM [Concomitant]
     Indication: MUSCLE SPASTICITY
     Route: 048
  3. BACLOFEN [Suspect]
     Indication: MUSCLE SPASTICITY
     Dosage: BOLUS TEST DOSE VIA LUMBAR PUNCTURE
     Route: 037

REACTIONS (3)
  - HYPOTENSION [None]
  - BRADYCARDIA [None]
  - CARDIAC ARREST [None]
